FAERS Safety Report 23177875 (Version 1)
Quarter: 2023Q4

REPORT INFORMATION
  Report Type: Spontaneous
  Country: US (occurrence: None)
  Receive Date: 20231112
  Receipt Date: 20231112
  Transmission Date: 20240109
  Serious: Yes (Other)
  Sender: FDA-Public Use
  Company Number: None

PATIENT
  Age: 43 Year
  Sex: Female
  Weight: 99.9 kg

DRUGS (10)
  1. VRAYLAR [Suspect]
     Active Substance: CARIPRAZINE
     Indication: Bipolar disorder
     Dates: start: 20231009, end: 20231104
  2. LITHIUM [Concomitant]
     Active Substance: LITHIUM
  3. KLONOPIN [Concomitant]
     Active Substance: CLONAZEPAM
  4. TRILEPTAL [Concomitant]
     Active Substance: OXCARBAZEPINE
  5. amlodapine [Concomitant]
  6. OXYCODONE [Concomitant]
     Active Substance: OXYCODONE
  7. LEVOTHYROXINE [Concomitant]
     Active Substance: LEVOTHYROXINE
  8. RABEPRAZOLE [Concomitant]
     Active Substance: RABEPRAZOLE
  9. VITAMIN D3 [Concomitant]
     Active Substance: CHOLECALCIFEROL
  10. OMEGA 3 [Concomitant]
     Active Substance: CAPSAICIN

REACTIONS (9)
  - Bell^s palsy [None]
  - Fatigue [None]
  - Asthenia [None]
  - Pain [None]
  - Neck pain [None]
  - Impaired driving ability [None]
  - Confusional state [None]
  - Palpitations [None]
  - Dyspnoea [None]

NARRATIVE: CASE EVENT DATE: 20231031
